FAERS Safety Report 7307978-7 (Version None)
Quarter: 2011Q1

REPORT INFORMATION
  Report Type: 
  Country: None (occurrence: None)
  Receive Date: 20110223
  Receipt Date: 20110216
  Transmission Date: 20110831
  Serious: Yes (Death, Other)
  Sender: FDA-Public Use
  Company Number: JP-BAYER-200913213BYL

PATIENT
  Sex: Female

DRUGS (7)
  1. ALBUMIN (HUMAN) [Concomitant]
     Route: 065
     Dates: start: 20090825
  2. UNCODEABLE ^UNCLASSIFIABLE^ [Concomitant]
     Route: 065
     Dates: start: 20090825
  3. UREPEARL [Concomitant]
     Indication: PALMAR-PLANTAR ERYTHRODYSAESTHESIA SYNDROME
     Route: 061
     Dates: start: 20090729, end: 20090826
  4. UREPEARL [Concomitant]
  5. LASIX [Concomitant]
     Route: 065
     Dates: start: 20090825
  6. NEXAVAR [Suspect]
     Indication: HEPATIC NEOPLASM MALIGNANT
     Route: 048
     Dates: start: 20090729, end: 20090826
  7. UREPEARL [Concomitant]
     Indication: PROPHYLAXIS

REACTIONS (5)
  - CARDIAC FAILURE CONGESTIVE [None]
  - HEPATIC FUNCTION ABNORMAL [None]
  - HEPATIC NEOPLASM MALIGNANT [None]
  - PALMAR-PLANTAR ERYTHRODYSAESTHESIA SYNDROME [None]
  - DIARRHOEA [None]
